FAERS Safety Report 6958595-X (Version None)
Quarter: 2010Q3

REPORT INFORMATION
  Report Type: 
  Country: None (occurrence: None)
  Receive Date: 20100831
  Receipt Date: 20100825
  Transmission Date: 20110219
  Serious: Yes (Life-Threatening, Hospitalization)
  Sender: FDA-Public Use
  Company Number: US-US-EMD SERONO, INC.-237910K09USA

PATIENT
  Sex: Female

DRUGS (11)
  1. REBIF [Suspect]
     Indication: MARBURG'S VARIANT MULTIPLE SCLEROSIS
     Route: 058
     Dates: start: 20090224, end: 20090701
  2. UNSPECIFIED MEDICATIONS [Concomitant]
     Route: 065
  3. TYLENOL-500 [Concomitant]
  4. METOPROLOL TARTRATE [Concomitant]
  5. DECADRON [Concomitant]
  6. NAPROXEN [Concomitant]
  7. ALLEGRA [Concomitant]
  8. PROMETHAZINE [Concomitant]
     Route: 048
  9. PROZAC [Concomitant]
     Indication: DEPRESSION
  10. CLONAZEPAM [Concomitant]
     Indication: MUSCLE SPASTICITY
  11. LORTAB [Concomitant]
     Indication: PAIN

REACTIONS (18)
  - ANAEMIA [None]
  - ASPIRATION [None]
  - ASTHMA [None]
  - CONTUSION [None]
  - DYSPHAGIA [None]
  - DYSPNOEA [None]
  - MALNUTRITION [None]
  - MENINGITIS [None]
  - MULTIPLE SCLEROSIS RELAPSE [None]
  - OEDEMA PERIPHERAL [None]
  - OXYGEN SATURATION DECREASED [None]
  - PNEUMONIA ASPIRATION [None]
  - RENAL FAILURE ACUTE [None]
  - STAPHYLOCOCCAL BACTERAEMIA [None]
  - STATUS EPILEPTICUS [None]
  - THROMBOCYTOPENIA [None]
  - UNRESPONSIVE TO STIMULI [None]
  - URINARY TRACT INFECTION [None]
